FAERS Safety Report 6525288-2 (Version None)
Quarter: 2010Q1

REPORT INFORMATION
  Report Type: 
  Country: None (occurrence: None)
  Receive Date: 20100104
  Receipt Date: 20091222
  Transmission Date: 20100710
  Serious: Yes (Other)
  Sender: FDA-Public Use
  Company Number: CH-PFIZER INC-2009292876

PATIENT
  Sex: Female

DRUGS (2)
  1. NEURONTIN [Suspect]
     Indication: TRIGEMINAL NEURALGIA
     Dosage: 800 MG, 3X/DAY
  2. DEXAMETHASONE [Concomitant]
     Dosage: 4 MG, 3X/DAY

REACTIONS (6)
  - HYPOAESTHESIA FACIAL [None]
  - LIP DISORDER [None]
  - LIP SWELLING [None]
  - PERIPHERAL NERVE DECOMPRESSION [None]
  - RADIOTHERAPY [None]
  - TRIGEMINAL NEURALGIA [None]
